FAERS Safety Report 6671633-7 (Version None)
Quarter: 2010Q2

REPORT INFORMATION
  Report Type: 
  Country: None (occurrence: None)
  Receive Date: 20100406
  Receipt Date: 20100406
  Transmission Date: 20101027
  Serious: Yes (Other)
  Sender: FDA-Public Use
  Company Number: None

PATIENT
  Sex: Female
  Weight: 68.0396 kg

DRUGS (6)
  1. SKIN ID PERSONALIZED ACNE SOLUTION ANTI ACNE TREATMENT #32 NEUTROGENA [Suspect]
     Indication: ACNE
     Dosage: THIN LAYER 1-3 X A DAY APPLY TO FACE
     Dates: start: 20091101, end: 20100201
  2. ADDERALL 30 [Concomitant]
  3. CYMBALTA [Concomitant]
  4. ZOFRAN, OTHER PROKINETICS [Concomitant]
  5. NUVIGIL [Concomitant]
  6. NUVARING [Concomitant]

REACTIONS (2)
  - ERYTHEMA OF EYELID [None]
  - EYELID OEDEMA [None]
